FAERS Safety Report 15321561 (Version 1)
Quarter: 2018Q3

REPORT INFORMATION
  Report Type: Spontaneous
  Country: US (occurrence: US)
  Receive Date: 20180827
  Receipt Date: 20180827
  Transmission Date: 20181010
  Serious: No
  Sender: FDA-Public Use
  Company Number: US-GLAXOSMITHKLINE-US2018151957

PATIENT
  Age: 59 Year
  Sex: Female

DRUGS (4)
  1. CLARITHROMYCIN. [Concomitant]
     Active Substance: CLARITHROMYCIN
     Dosage: 500 MG, UNK
     Dates: end: 20180820
  2. ARNUITY ELLIPTA [Suspect]
     Active Substance: FLUTICASONE FUROATE
     Indication: ASTHMA
     Dosage: 1 PUFF(S), UNK
     Route: 055
     Dates: start: 20180821
  3. CIMZIA [Concomitant]
     Active Substance: CERTOLIZUMAB PEGOL
  4. ARNUITY ELLIPTA [Suspect]
     Active Substance: FLUTICASONE FUROATE
     Indication: CHRONIC OBSTRUCTIVE PULMONARY DISEASE

REACTIONS (2)
  - Paraesthesia oral [Not Recovered/Not Resolved]
  - Product use in unapproved indication [Not Recovered/Not Resolved]

NARRATIVE: CASE EVENT DATE: 20180821
